FAERS Safety Report 7651788-8 (Version None)
Quarter: 2011Q3

REPORT INFORMATION
  Report Type: 
  Country: None (occurrence: None)
  Receive Date: 20110802
  Receipt Date: 20110228
  Transmission Date: 20111222
  Serious: Yes (Death, Hospitalization, Other)
  Sender: FDA-Public Use
  Company Number: PHEH2008US08703

PATIENT
  Sex: Female

DRUGS (50)
  1. DARVOCET-N 50 [Concomitant]
  2. PRILOSEC [Concomitant]
  3. CHEMOTHERAPEUTICS NOS [Concomitant]
  4. PANTOPRAZOLE SODIUM [Concomitant]
  5. ARIMIDEX [Concomitant]
  6. POTASSIUM GLUCONATE TAB [Concomitant]
  7. ADRIAMYCIN PFS [Concomitant]
  8. AVASTIN [Concomitant]
  9. ZANTAC [Concomitant]
  10. VITAMIN B COMPLEX CAP [Concomitant]
  11. CALCITRIOL [Concomitant]
     Dosage: 0.25 UG, UNK
  12. PHENERGAN HCL [Concomitant]
  13. DECADRON [Concomitant]
     Dates: end: 20060710
  14. ASPIRIN [Concomitant]
  15. ZOFRAN [Concomitant]
  16. HEPARIN [Concomitant]
  17. AREDIA [Suspect]
     Dosage: 60 MG, UNK
     Route: 042
  18. PENICILLIN NOS [Concomitant]
  19. MORPHINE [Concomitant]
     Indication: PAIN IN JAW
  20. LINEZOLID [Concomitant]
  21. MOTRIN [Concomitant]
  22. TAXOL [Concomitant]
  23. ZYVOX [Concomitant]
  24. ATIVAN [Concomitant]
  25. DURAGESIC-100 [Concomitant]
  26. KENALOG [Concomitant]
  27. CLINDAMYCIN [Concomitant]
  28. FASLODEX [Concomitant]
  29. CALCIUM CARBONATE [Concomitant]
  30. FLAGYL [Concomitant]
  31. HORMONES NOS [Concomitant]
  32. SOMA [Concomitant]
  33. METRONIDAZOLE [Concomitant]
  34. FERROUS SULFATE TAB [Concomitant]
  35. MULTI-VITAMINS [Concomitant]
  36. ZOMETA [Suspect]
     Indication: BREAST CANCER METASTATIC
     Dosage: UNK
     Dates: start: 20050901, end: 20060701
  37. FEMARA [Concomitant]
  38. CLEOCIN HYDROCHLORIDE [Concomitant]
  39. VICODIN [Concomitant]
  40. NEXIUM [Concomitant]
  41. VICODIN ES [Concomitant]
  42. BENADRYL [Concomitant]
  43. LEVAQUIN [Concomitant]
     Dosage: UNK
     Dates: end: 20060710
  44. MS CONTIN [Concomitant]
  45. ACIPHEX [Concomitant]
  46. VIVELLE [Concomitant]
     Route: 062
  47. COLACE [Concomitant]
  48. FLUOROURACIL [Concomitant]
  49. CYTOXAN [Concomitant]
  50. VANCOMYCIN [Concomitant]

REACTIONS (80)
  - ANHEDONIA [None]
  - OSTEORADIONECROSIS [None]
  - PERIODONTITIS [None]
  - PAIN IN JAW [None]
  - CARDIOMEGALY [None]
  - FLANK PAIN [None]
  - NEOPLASM MALIGNANT [None]
  - HYPOAESTHESIA ORAL [None]
  - ANAEMIA [None]
  - ACTIVITIES OF DAILY LIVING IMPAIRED [None]
  - SPLENIC ARTERY ANEURYSM [None]
  - PYREXIA [None]
  - RENAL FAILURE ACUTE [None]
  - DYSPNOEA [None]
  - MASTICATION DISORDER [None]
  - DENTAL CARIES [None]
  - OSTEOMYELITIS [None]
  - BLOOD CALCIUM INCREASED [None]
  - BACTERIAL TEST POSITIVE [None]
  - HEPATIC LESION [None]
  - GASTROINTESTINAL HAEMORRHAGE [None]
  - HAEMORRHAGIC STROKE [None]
  - SPINAL CORD COMPRESSION [None]
  - BRONCHITIS [None]
  - BREAST FIBROSIS [None]
  - GAIT DISTURBANCE [None]
  - SALIVARY GLAND MASS [None]
  - GASTROOESOPHAGEAL REFLUX DISEASE [None]
  - JOINT RANGE OF MOTION DECREASED [None]
  - CARCINOEMBRYONIC ANTIGEN INCREASED [None]
  - BACK PAIN [None]
  - MELAENA [None]
  - AORTIC ARTERIOSCLEROSIS [None]
  - DIASTOLIC DYSFUNCTION [None]
  - LEFT ATRIAL DILATATION [None]
  - MUSCULAR WEAKNESS [None]
  - DEFORMITY [None]
  - INJURY [None]
  - SWELLING [None]
  - EATING DISORDER SYMPTOM [None]
  - WOUND INFECTION STAPHYLOCOCCAL [None]
  - ALTERED VISUAL DEPTH PERCEPTION [None]
  - PANCREATIC NEOPLASM [None]
  - MUSCULOSKELETAL STIFFNESS [None]
  - METASTASES TO SPINE [None]
  - PAIN [None]
  - EMOTIONAL DISTRESS [None]
  - DENTAL FISTULA [None]
  - ABSCESS JAW [None]
  - DEHYDRATION [None]
  - GASTRIC ULCER [None]
  - COORDINATION ABNORMAL [None]
  - ABDOMINAL PAIN UPPER [None]
  - STAPHYLOCOCCAL INFECTION [None]
  - MUSCLE SPASMS [None]
  - THROMBOCYTOPENIA [None]
  - HYPERPARATHYROIDISM SECONDARY [None]
  - BREAST CALCIFICATIONS [None]
  - HEPATIC NEOPLASM [None]
  - OSTEONECROSIS OF JAW [None]
  - ANXIETY [None]
  - PALATAL DISORDER [None]
  - CELLULITIS [None]
  - RENAL IMPAIRMENT [None]
  - POLLAKIURIA [None]
  - VOMITING [None]
  - COMA [None]
  - NAUSEA [None]
  - TOOTH LOSS [None]
  - VISUAL IMPAIRMENT [None]
  - SKIN PAPILLOMA [None]
  - BONE DISORDER [None]
  - MOUTH ULCERATION [None]
  - JAW DISORDER [None]
  - WEIGHT DECREASED [None]
  - LUNG HYPERINFLATION [None]
  - METASTASES TO SPLEEN [None]
  - BLOOD ALKALINE PHOSPHATASE INCREASED [None]
  - OSTEOSCLEROSIS [None]
  - ARTHRALGIA [None]
